FAERS Safety Report 13151017 (Version 1)
Quarter: 2017Q1

REPORT INFORMATION
  Report Type: Spontaneous
  Country: US (occurrence: US)
  Receive Date: 20170125
  Receipt Date: 20170125
  Transmission Date: 20170428
  Serious: No
  Sender: FDA-Public Use
  Company Number: US-GLAXOSMITHKLINE-US2017GSK009746

PATIENT
  Sex: Male

DRUGS (2)
  1. XOLAIR [Concomitant]
     Active Substance: OMALIZUMAB
  2. NUCALA [Suspect]
     Active Substance: MEPOLIZUMAB
     Indication: ASTHMA
     Dosage: DOSE/STRENGTH 100 MG
     Route: 042
     Dates: start: 20160226, end: 20160502

REACTIONS (1)
  - Drug ineffective [Unknown]

NARRATIVE: CASE EVENT DATE: 2016
